FAERS Safety Report 20461149 (Version 3)
Quarter: 2022Q4

REPORT INFORMATION
  Report Type: Spontaneous
  Country: US (occurrence: US)
  Receive Date: 20220211
  Receipt Date: 20221013
  Transmission Date: 20230112
  Serious: Yes (Hospitalization)
  Sender: FDA-Public Use
  Company Number: US-BAYER-2022A019148

PATIENT
  Age: 28 Year
  Sex: Female

DRUGS (1)
  1. MIRENA [Suspect]
     Active Substance: LEVONORGESTREL
     Dosage: 20?G/DAY
     Route: 015
     Dates: start: 20201106, end: 20201106

REACTIONS (4)
  - Anaphylactic reaction [None]
  - Urticaria [None]
  - Medical device monitoring error [None]
  - Contraindicated device used [None]

NARRATIVE: CASE EVENT DATE: 20201106
